FAERS Safety Report 9516443 (Version 1)
Quarter: 2013Q1

REPORT INFORMATION
  Report Type: Spontaneous
  Country: US (occurrence: None)
  Receive Date: 20130305
  Receipt Date: 20130305
  Transmission Date: 20140127
  Serious: Yes (Other)
  Sender: FDA-Public Use
  Company Number: 163-21880-12113787

PATIENT
  Age: 77 Year
  Sex: Female

DRUGS (9)
  1. REVLIMID (LENALIDOMIDE) (CAPSULES) [Suspect]
     Indication: PLASMA CELL MYELOMA
     Dosage: 10 MG,  14 IN 14 D,  PO?08/12/2008 -  DISCONTINUED
     Route: 048
     Dates: start: 20080812
  2. VELCADE (UNKNOWN) [Concomitant]
  3. LISINOPRIL (LISINOPRIL) (UNKNOWN) [Concomitant]
  4. HYDROCHLOROTHIAZIDE (HYDROCHLOROTHIAZIDE) (UNKNOWN) [Concomitant]
  5. GLIPIZIDE XL (GLIPIZIDE) (UNKNOWN) [Concomitant]
  6. CLONIDINE HCL (CLONIDINE HYDROCHLORIDE) (UNKNOWN) [Concomitant]
  7. ATENOLOL (ATENOLOL) (UNKNOWN) [Concomitant]
  8. ASPIRIN EC (ACETYLSALICYLIC ACID) (UNKNOWN) [Concomitant]
  9. AMLODIPINE BESYBENAZEPRIL HCL (AMLODIPINE BESYLATE W/BENAZEPRIL HYDROCHLOR.) (UNKNOWN) [Concomitant]

REACTIONS (2)
  - Blood creatinine increased [None]
  - Herpes zoster [None]
